FAERS Safety Report 8866412 (Version 2)
Quarter: 2012Q4

REPORT INFORMATION
  Report Type: 
  Country: JP (occurrence: JP)
  Receive Date: 20121025
  Receipt Date: 20121101
  Transmission Date: 20130627
  Serious: Yes (Other)
  Sender: FDA-Public Use
  Company Number: JP-TEVA-365772ISR

PATIENT

DRUGS (1)
  1. MODIODAL [Suspect]
     Route: 048

REACTIONS (1)
  - Convulsion [Recovered/Resolved]
